FAERS Safety Report 9421240 (Version 1)
Quarter: 2013Q3

REPORT INFORMATION
  Report Type: Spontaneous
  Country: US (occurrence: US)
  Receive Date: 20130725
  Receipt Date: 20130725
  Transmission Date: 20140515
  Serious: No
  Sender: FDA-Public Use
  Company Number: US-BAXTER-2013BAX025271

PATIENT
  Age: 66 Year
  Sex: Female
  Weight: 84.09 kg

DRUGS (4)
  1. LACTATED RINGER^S INJECTION, USP [Suspect]
     Indication: FLUID REPLACEMENT
     Route: 042
     Dates: start: 201210, end: 201210
  2. INDERAL LA [Concomitant]
  3. PREMARIN [Concomitant]
  4. VITAMINS [Concomitant]

REACTIONS (2)
  - Infusion related reaction [Recovered/Resolved]
  - Infusion site pain [Recovered/Resolved]
